APPROVED DRUG PRODUCT: LEVALBUTEROL HYDROCHLORIDE
Active Ingredient: LEVALBUTEROL HYDROCHLORIDE
Strength: EQ 0.25% BASE
Dosage Form/Route: SOLUTION;INHALATION
Application: A207628 | Product #001 | TE Code: AN
Applicant: LUOXIN AUROVITAS PHARMA CHENGDU CO LTD
Approved: Jan 31, 2017 | RLD: No | RS: No | Type: RX